FAERS Safety Report 8938889 (Version 2)
Quarter: 2012Q4

REPORT INFORMATION
  Report Type: 
  Country: US (occurrence: US)
  Receive Date: 20121203
  Receipt Date: 20121203
  Transmission Date: 20130627
  Serious: No
  Sender: FDA-Public Use
  Company Number: US-PFIZER INC-2012300763

PATIENT
  Sex: Female

DRUGS (3)
  1. CHANTIX [Suspect]
     Indication: SMOKING CESSATION THERAPY
     Dosage: UNK
     Dates: start: 201211, end: 20121127
  2. CHANTIX [Suspect]
     Dosage: Two 1mg at once
     Dates: start: 20121128, end: 20121128
  3. CHANTIX [Suspect]
     Dosage: 2 tablets together
     Dates: start: 201211

REACTIONS (3)
  - Incorrect dose administered [Unknown]
  - Drug ineffective [Unknown]
  - Feeling jittery [Unknown]
